FAERS Safety Report 5362991-4 (Version None)
Quarter: 2007Q2

REPORT INFORMATION
  Report Type: 
  Country: None (occurrence: None)
  Receive Date: 20070615
  Receipt Date: 20070605
  Transmission Date: 20071010
  Serious: Yes (Hospitalization, Other)
  Sender: FDA-Public Use
  Company Number: GXKR2007ES04892

PATIENT
  Age: 26 Year
  Sex: Female

DRUGS (3)
  1. HYDROXYCHLOROQUINE SULFATE [Suspect]
     Indication: ARTHRITIS
     Dosage: 200 MG/DAY
  2. PREDNISONE TAB [Concomitant]
  3. NSAID'S (NO INGREDIENTS/SUBSTANCES) [Concomitant]

REACTIONS (1)
  - HEPATITIS ACUTE [None]
